FAERS Safety Report 9503130 (Version 1)
Quarter: 2013Q1

REPORT INFORMATION
  Report Type: Spontaneous
  Country: US (occurrence: None)
  Receive Date: 20130107
  Receipt Date: 20130107
  Transmission Date: 20140127
  Serious: No
  Sender: FDA-Public Use
  Company Number: PHEH2012US020398

PATIENT
  Age: 53 Year
  Sex: Female

DRUGS (9)
  1. GILENYA [Suspect]
     Indication: MULTIPLE SCLEROSIS
     Dosage: 1 DF, QD, ORAL
     Route: 048
     Dates: start: 20120405, end: 20120918
  2. ASCORBIC ACID [Concomitant]
  3. ERGOCALCIFEROL [Concomitant]
  4. FOLIC ACID [Concomitant]
  5. NICOTINAMIDE [Concomitant]
  6. PANTHENOL [Concomitant]
  7. RETINOL [Concomitant]
  8. RIBOFLAVIN [Concomitant]
  9. THIAMINE HYDROCHLORIDE [Concomitant]

REACTIONS (2)
  - Renal function test abnormal [None]
  - Hepatic enzyme increased [None]
